FAERS Safety Report 11031831 (Version 2)
Quarter: 2015Q2

REPORT INFORMATION
  Report Type: Spontaneous
  Country: IT (occurrence: IT)
  Receive Date: 20150415
  Receipt Date: 20150421
  Transmission Date: 20150821
  Serious: Yes (Other)
  Sender: FDA-Public Use
  Company Number: PHHY2015IT043509

PATIENT
  Age: 77 Year
  Sex: Male

DRUGS (2)
  1. CIPROFLOXACIN SANDOZ [Suspect]
     Active Substance: CIPROFLOXACIN
     Indication: PSEUDOMONAS INFECTION
     Dosage: 1 G, QD
     Route: 048
     Dates: start: 20150324, end: 20150327
  2. TORVAST [Interacting]
     Active Substance: ATORVASTATIN
     Indication: PSEUDOMONAS INFECTION
     Dosage: 20 MG, QD
     Route: 048

REACTIONS (2)
  - Transaminases increased [Recovered/Resolved]
  - Drug interaction [Recovered/Resolved]

NARRATIVE: CASE EVENT DATE: 20150325
